FAERS Safety Report 10154693 (Version 1)
Quarter: 2014Q2

REPORT INFORMATION
  Report Type: Spontaneous
  Country: BR (occurrence: BR)
  Receive Date: 20140506
  Receipt Date: 20140506
  Transmission Date: 20141212
  Serious: Yes (Death, Congenital Anomaly)
  Sender: FDA-Public Use
  Company Number: BR-ELI_LILLY_AND_COMPANY-BR201404009489

PATIENT
  Sex: 0

DRUGS (1)
  1. HUMULIN R [Suspect]
     Indication: TYPE 1 DIABETES MELLITUS
     Dosage: UNK, QD
     Route: 064

REACTIONS (3)
  - Foetal death [Fatal]
  - Congenital anomaly [Unknown]
  - Maternal exposure during pregnancy [Unknown]
